FAERS Safety Report 4948762-9 (Version None)
Quarter: 2006Q1

REPORT INFORMATION
  Report Type: 
  Country: None (occurrence: None)
  Receive Date: 20060321
  Receipt Date: 20060308
  Transmission Date: 20060701
  Serious: Yes (Life-Threatening, Hospitalization)
  Sender: FDA-Public Use
  Company Number: NL-JNJFOC-20050906812

PATIENT
  Sex: Female
  Weight: 80 kg

DRUGS (9)
  1. INFLIXIMAB, RECOMBINANT [Suspect]
     Indication: RHEUMATOID ARTHRITIS
     Route: 042
  2. METHOTREXATE [Concomitant]
     Indication: RHEUMATOID ARTHRITIS
     Route: 065
  3. SULFASALAZINE [Concomitant]
     Indication: RHEUMATOID ARTHRITIS
     Route: 065
  4. ARTHROTEC [Concomitant]
     Indication: RHEUMATOID ARTHRITIS
     Route: 065
     Dates: start: 20050125
  5. ARTHROTEC [Concomitant]
     Indication: PAIN
     Route: 065
     Dates: start: 20050125
  6. PAROXETINE HCL [Concomitant]
     Indication: DEPRESSION
     Route: 065
  7. NEXIUM [Concomitant]
     Route: 065
  8. FOLIC ACID [Concomitant]
     Route: 065
     Dates: start: 20020326
  9. SINTROM [Concomitant]
     Indication: PULMONARY EMBOLISM
     Route: 065
     Dates: start: 20050317, end: 20050915

REACTIONS (1)
  - BREAST CANCER [None]
